FAERS Safety Report 10201895 (Version 1)
Quarter: 2014Q2

REPORT INFORMATION
  Report Type: Report from Study
  Country: BR (occurrence: BR)
  Receive Date: 20140528
  Receipt Date: 20140528
  Transmission Date: 20141212
  Serious: Yes (Other)
  Sender: FDA-Public Use
  Company Number: PHHY2014BR065256

PATIENT
  Sex: Female

DRUGS (4)
  1. ACLASTA [Suspect]
     Indication: OSTEOPOROSIS
     Dosage: 5 MG ONCE A YEAR
     Route: 042
  2. OS-CAL D [Concomitant]
     Indication: OSTEOPOROSIS
     Dosage: 500 UKN, A DAY
  3. FLUOXETINE [Concomitant]
     Indication: DEPRESSION
     Dosage: 1 DF, A DAY
  4. OMEPRAZOLE [Concomitant]
     Indication: GASTRITIS
     Dosage: 1 DF, A DAY

REACTIONS (1)
  - Pneumonia [Recovering/Resolving]
